FAERS Safety Report 9000101 (Version 1)
Quarter: 2013Q1

REPORT INFORMATION
  Report Type: Spontaneous
  Country: BR (occurrence: BR)
  Receive Date: 20130102
  Receipt Date: 20130102
  Transmission Date: 20140127
  Serious: Yes (Other)
  Sender: FDA-Public Use
  Company Number: BR-BAYER-2012-135530

PATIENT
  Age: 30 Year
  Sex: Female
  Weight: 58.05 kg

DRUGS (2)
  1. AVALOX [Suspect]
     Indication: PHARYNGITIS
     Dosage: 1 DF, QD
     Route: 048
     Dates: start: 20121222
  2. YAZ (24) [Concomitant]
     Indication: CONTRACEPTION
     Dosage: UNK
     Route: 048
     Dates: start: 2007

REACTIONS (6)
  - Angina pectoris [Recovered/Resolved]
  - Chest pain [Recovered/Resolved]
  - Heart rate increased [Recovered/Resolved]
  - Malaise [None]
  - Asthenia [Recovered/Resolved]
  - Headache [Recovered/Resolved]
